FAERS Safety Report 7713687-2 (Version None)
Quarter: 2011Q3

REPORT INFORMATION
  Report Type: 
  Country: None (occurrence: None)
  Receive Date: 20110826
  Receipt Date: 20110815
  Transmission Date: 20111222
  Serious: Yes (Other)
  Sender: FDA-Public Use
  Company Number: KR-MYLANLABS-2011S1017253

PATIENT
  Age: 55 Year
  Sex: Male

DRUGS (3)
  1. CORTICOSTEROIDS [Interacting]
     Indication: KERATOPLASTY
     Route: 048
  2. ACYCLOVIR [Interacting]
     Indication: KERATITIS HERPETIC
     Route: 048
  3. MYCOPHENOLATE MOFETIL [Suspect]
     Indication: KERATOPLASTY
     Route: 065

REACTIONS (2)
  - GRAND MAL CONVULSION [None]
  - DRUG INTERACTION [None]
